FAERS Safety Report 16182931 (Version 1)
Quarter: 2019Q2

REPORT INFORMATION
  Report Type: Spontaneous
  Country: US (occurrence: US)
  Receive Date: 20190411
  Receipt Date: 20190411
  Transmission Date: 20190711
  Serious: Yes (Other)
  Sender: FDA-Public Use
  Company Number: US-CIPLA LTD.-2019US01569

PATIENT

DRUGS (6)
  1. METHOTREXATE. [Concomitant]
     Active Substance: METHOTREXATE
     Indication: UNDIFFERENTIATED CONNECTIVE TISSUE DISEASE
     Dosage: 15 MILLIGRAM, WEEKLY
     Route: 065
  2. HYDROXYCHLOROQUINE [Concomitant]
     Active Substance: HYDROXYCHLOROQUINE
     Indication: UNDIFFERENTIATED CONNECTIVE TISSUE DISEASE
     Dosage: 400 MILLIGRAM, DAILY
     Route: 065
  3. TOPIRAMATE. [Suspect]
     Active Substance: TOPIRAMATE
     Indication: MIGRAINE PROPHYLAXIS
     Dosage: 25 MILLIGRAM DAILY
     Route: 048
     Dates: start: 201711, end: 201803
  4. TOPIRAMATE. [Suspect]
     Active Substance: TOPIRAMATE
     Dosage: 50 MILLIGRAM, BID (EVERY 12 HOURS)
     Route: 048
     Dates: start: 201804, end: 201804
  5. HYDROXYCHLOROQUINE [Concomitant]
     Active Substance: HYDROXYCHLOROQUINE
     Indication: DACTYLITIS
  6. METHOTREXATE. [Concomitant]
     Active Substance: METHOTREXATE
     Indication: DACTYLITIS

REACTIONS (1)
  - Interstitial granulomatous dermatitis [Recovering/Resolving]

NARRATIVE: CASE EVENT DATE: 201804
